FAERS Safety Report 9699845 (Version 1)
Quarter: 2013Q4

REPORT INFORMATION
  Report Type: Spontaneous
  Country: FR (occurrence: FR)
  Receive Date: 20131120
  Receipt Date: 20131120
  Transmission Date: 20140711
  Serious: Yes (Other)
  Sender: FDA-Public Use
  Company Number: FR-AMGEN-FRASP2013080811

PATIENT
  Age: 57 Year
  Sex: Male

DRUGS (5)
  1. XGEVA [Suspect]
     Indication: BONE CANCER
     Dosage: 120 MG, QMO
     Route: 058
     Dates: start: 201302, end: 201309
  2. XGEVA [Suspect]
     Indication: PROSTATE CANCER METASTATIC
  3. ZYTIGA [Concomitant]
     Indication: PROSTATE CANCER
     Dosage: 250 MG, 4 CP/D
     Route: 048
     Dates: start: 201307
  4. PREDNISONE [Concomitant]
     Indication: PROSTATE CANCER
     Dosage: 10 MG, 1 CP/D
     Route: 048
     Dates: start: 201307
  5. NORSET [Concomitant]
     Dosage: 20 MG, QD
     Route: 048
     Dates: start: 2010

REACTIONS (1)
  - Cataract [Unknown]
